FAERS Safety Report 10814274 (Version 1)
Quarter: 2015Q1

REPORT INFORMATION
  Report Type: Report from Study
  Country: US (occurrence: US)
  Receive Date: 20150218
  Receipt Date: 20150218
  Transmission Date: 20150721
  Serious: No
  Sender: FDA-Public Use
  Company Number: US-ABBVIE-14K-163-1281503-00

PATIENT
  Age: 64 Year
  Sex: Female

DRUGS (1)
  1. HUMIRA [Suspect]
     Active Substance: ADALIMUMAB
     Indication: CROHN^S DISEASE
     Route: 058
     Dates: start: 20131118

REACTIONS (7)
  - Nausea [Unknown]
  - Red blood cell sedimentation rate increased [Unknown]
  - Oesophagitis ulcerative [Unknown]
  - Faeces discoloured [Unknown]
  - Crohn^s disease [Unknown]
  - Antinuclear antibody increased [Unknown]
  - C-reactive protein increased [Unknown]

NARRATIVE: CASE EVENT DATE: 201406
